FAERS Safety Report 9259188 (Version 1)
Quarter: 2013Q2

REPORT INFORMATION
  Report Type: Spontaneous
  Country: US (occurrence: US)
  Receive Date: 20130426
  Receipt Date: 20130426
  Transmission Date: 20140414
  Serious: Yes (Hospitalization)
  Sender: FDA-Public Use
  Company Number: US-ASTRAZENECA-2013SE26948

PATIENT
  Age: 79 Year
  Sex: Female

DRUGS (3)
  1. TOPROL XL [Suspect]
     Route: 048
  2. LISINOPRIL [Suspect]
     Route: 048
  3. XANAX [Concomitant]

REACTIONS (6)
  - Cerebrovascular accident [Unknown]
  - Malaise [Unknown]
  - Anxiety [Unknown]
  - Depressed mood [Unknown]
  - Fatigue [Unknown]
  - Asthenia [Unknown]
